FAERS Safety Report 4883410-8 (Version None)
Quarter: 2006Q1

REPORT INFORMATION
  Report Type: 
  Country: None (occurrence: None)
  Receive Date: 20060118
  Receipt Date: 20060109
  Transmission Date: 20060701
  Serious: Yes (Hospitalization)
  Sender: FDA-Public Use
  Company Number: FR-BRISTOL-MYERS SQUIBB COMPANY-13242847

PATIENT
  Age: 83 Year
  Sex: Male

DRUGS (8)
  1. COAPROVEL FILM-COATED TABS 300/12.5 MG [Suspect]
     Indication: HYPERTENSION
     Dosage: DURATION OF THERAPY:  ^FOR MANY YEARS^
     Route: 048
     Dates: end: 20051206
  2. ALDACTAZINE [Suspect]
     Indication: HYPERTENSION
     Dosage: DURATION OF THERAPY:  ^FOR MANY YEARS^
     Dates: end: 20051206
  3. BACTRIM [Suspect]
     Indication: URINARY TRACT INFECTION
     Dates: start: 20051128, end: 20051205
  4. POTASSIUM [Concomitant]
  5. ASPEGIC [Concomitant]
  6. HYPERIUM [Concomitant]
  7. ISOPTIN [Concomitant]
  8. STAGID [Concomitant]

REACTIONS (3)
  - HYPONATRAEMIA [None]
  - LOSS OF CONSCIOUSNESS [None]
  - MALAISE [None]
